FAERS Safety Report 17364905 (Version 3)
Quarter: 2022Q2

REPORT INFORMATION
  Report Type: Other
  Country: DE (occurrence: DE)
  Receive Date: 20200204
  Receipt Date: 20220606
  Transmission Date: 20220720
  Serious: Yes (Hospitalization, Other)
  Sender: FDA-Public Use
  Company Number: DE-CELLTRION INC.-2020DE018288

PATIENT

DRUGS (3)
  1. RITUXIMAB [Suspect]
     Active Substance: RITUXIMAB
     Indication: Non-Hodgkin^s lymphoma
     Route: 065
  2. CYCLOPHOSPHAMIDE\DOXORUBICIN\PREDNISONE\VINCRISTINE [Suspect]
     Active Substance: CYCLOPHOSPHAMIDE\DOXORUBICIN\PREDNISONE\VINCRISTINE
     Indication: Non-Hodgkin^s lymphoma
     Route: 065
  3. CARBOPLATIN\ETOPOSIDE\IFOSFAMIDE [Suspect]
     Active Substance: CARBOPLATIN\ETOPOSIDE\IFOSFAMIDE
     Indication: Non-Hodgkin^s lymphoma
     Route: 065

REACTIONS (2)
  - Pancytopenia [Not Recovered/Not Resolved]
  - Drug ineffective [Unknown]
